FAERS Safety Report 6814248-X (Version None)
Quarter: 2010Q3

REPORT INFORMATION
  Report Type: 
  Country: None (occurrence: None)
  Receive Date: 20100702
  Receipt Date: 20100624
  Transmission Date: 20110219
  Serious: Yes (Hospitalization)
  Sender: FDA-Public Use
  Company Number: CN-JNJFOC-20100604015

PATIENT
  Age: 5 Month
  Sex: Female
  Weight: 7.5 kg

DRUGS (2)
  1. CHILDREN'S MOTRIN [Suspect]
     Route: 048
  2. CHILDREN'S MOTRIN [Suspect]
     Indication: PYREXIA
     Dosage: 15 ML BOTTLE: 0.6 G
     Route: 048

REACTIONS (2)
  - LARYNGITIS [None]
  - OBSTRUCTIVE AIRWAYS DISORDER [None]
